FAERS Safety Report 8844506 (Version 1)
Quarter: 2012Q4

REPORT INFORMATION
  Report Type: Spontaneous
  Country: DK (occurrence: None)
  Receive Date: 20121012
  Receipt Date: 20121012
  Transmission Date: 20130627
  Serious: Yes (Other)
  Sender: FDA-Public Use
  Company Number: 2012MA011942

PATIENT
  Age: 34 Year
  Sex: Male

DRUGS (4)
  1. DIAZEPAM TABLETS USP (PUREPAC) [Suspect]
     Indication: EPILEPSY
  2. TEGRETOL [Concomitant]
  3. RETARDILLIN [Concomitant]
  4. LAMICTAL [Concomitant]

REACTIONS (3)
  - Aggression [None]
  - Physical assault [None]
  - Memory impairment [None]
